FAERS Safety Report 9775430 (Version 1)
Quarter: 2013Q4

REPORT INFORMATION
  Report Type: Report from Study
  Country: US (occurrence: US)
  Receive Date: 20131220
  Receipt Date: 20131220
  Transmission Date: 20140711
  Serious: No
  Sender: FDA-Public Use
  Company Number: US-B.I. PHARMACEUTICALS,INC./RIDGEFIELD-2013-BI-40376BI

PATIENT
  Age: 62 Year
  Sex: Female

DRUGS (10)
  1. GILOTRIF [Suspect]
     Indication: NON-SMALL CELL LUNG CANCER
     Dosage: 40 MG
     Route: 048
     Dates: start: 20131108
  2. GILOTRIF [Suspect]
     Indication: LUNG NEOPLASM MALIGNANT
     Dosage: 40 MG
     Route: 048
     Dates: start: 20131125
  3. GILOTRIF [Suspect]
     Dosage: 40 MG
     Route: 048
     Dates: start: 20131217
  4. B 12 [Concomitant]
     Dosage: FORMULATION: INJECTION
  5. ATENOLOL [Concomitant]
     Indication: HYPERTENSION
  6. VALTREX [Concomitant]
  7. HYDROCODONE COUGH SYRUP [Concomitant]
  8. HYDROCODONE PAIN PILL [Concomitant]
  9. LORAZEPAM [Concomitant]
  10. WELCHOL [Concomitant]
     Indication: DYSPEPSIA

REACTIONS (9)
  - Abdominal pain [Not Recovered/Not Resolved]
  - Diarrhoea [Not Recovered/Not Resolved]
  - Decreased appetite [Not Recovered/Not Resolved]
  - Diarrhoea [Unknown]
  - Onychoclasis [Not Recovered/Not Resolved]
  - Stomatitis [Recovered/Resolved]
  - Rash [Not Recovered/Not Resolved]
  - Dry skin [Not Recovered/Not Resolved]
  - Trichorrhexis [Not Recovered/Not Resolved]
